FAERS Safety Report 5878717-1 (Version None)
Quarter: 2008Q3

REPORT INFORMATION
  Report Type: 
  Country: None (occurrence: None)
  Receive Date: 20080912
  Receipt Date: 20080905
  Transmission Date: 20090109
  Serious: Yes (Death)
  Sender: FDA-Public Use
  Company Number: GB-JNJFOC-20080806195

PATIENT
  Age: 74 Year
  Sex: Female

DRUGS (5)
  1. HALOPERIDOL [Suspect]
     Indication: PSYCHOTIC DISORDER
     Route: 048
  2. HALOPERIDOL [Suspect]
     Indication: DEMENTIA ALZHEIMER'S TYPE
     Route: 048
  3. LORAZEPAM [Concomitant]
     Indication: AGITATION
     Route: 048
  4. PROMAZINE HYDROCHLORIDE [Concomitant]
     Indication: AGITATION
     Route: 048
  5. VALPROATE SODIUM [Concomitant]
     Indication: AGITATION
     Route: 048

REACTIONS (3)
  - DEHYDRATION [None]
  - DYSTONIA [None]
  - STARVATION [None]
